FAERS Safety Report 21287601 (Version 2)
Quarter: 2022Q3

REPORT INFORMATION
  Report Type: Report from Study
  Country: CA (occurrence: CA)
  Receive Date: 20220902
  Receipt Date: 20220927
  Transmission Date: 20221027
  Serious: Yes (Other)
  Sender: FDA-Public Use
  Company Number: CA-ABBVIE-22K-028-4523856-00

PATIENT
  Age: 77 Year

DRUGS (1)
  1. SKYRIZI [Suspect]
     Active Substance: RISANKIZUMAB-RZAA
     Indication: Psoriasis
     Route: 058
     Dates: start: 20210625

REACTIONS (3)
  - Superficial spreading melanoma stage unspecified [Unknown]
  - Skin disorder [Not Recovered/Not Resolved]
  - Ephelides [Unknown]

NARRATIVE: CASE EVENT DATE: 20220404
